FAERS Safety Report 16907169 (Version 1)
Quarter: 2019Q4

REPORT INFORMATION
  Report Type: Spontaneous
  Country: CA (occurrence: CA)
  Receive Date: 20191011
  Receipt Date: 20191011
  Transmission Date: 20200122
  Serious: Yes (Hospitalization)
  Sender: FDA-Public Use
  Company Number: CA-TEVA-2019-CA-1119159

PATIENT
  Age: 42 Year
  Sex: Female
  Weight: 79 kg

DRUGS (3)
  1. CEFIXIME. [Concomitant]
     Active Substance: CEFIXIME
  2. CODEINE [Concomitant]
     Active Substance: CODEINE
  3. VENLAFAXINE HYDROCHLORIDE. [Suspect]
     Active Substance: VENLAFAXINE HYDROCHLORIDE
     Indication: DEPRESSION
     Route: 048

REACTIONS (3)
  - Seizure [Recovered/Resolved]
  - Fracture [Recovered/Resolved]
  - Muscle twitching [Recovered/Resolved]
